FAERS Safety Report 9015914 (Version 1)
Quarter: 2013Q1

REPORT INFORMATION
  Report Type: Spontaneous
  Country: US (occurrence: US)
  Receive Date: 20130116
  Receipt Date: 20130116
  Transmission Date: 20140127
  Serious: No
  Sender: FDA-Public Use
  Company Number: US-PFIZER INC-2013017874

PATIENT
  Age: 62 Year
  Sex: Male
  Weight: 81.63 kg

DRUGS (2)
  1. VIAGRA [Suspect]
     Indication: ERECTILE DYSFUNCTION
     Dosage: UNKNOWN DOSE AS NEEDED
     Dates: start: 201211
  2. VIAGRA [Suspect]
     Dosage: HALF OF 50 MG TABLET, AS NEEDED
     Route: 048
     Dates: start: 201212

REACTIONS (1)
  - Headache [Recovered/Resolved]
